FAERS Safety Report 9935208 (Version 2)
Quarter: 2014Q1

REPORT INFORMATION
  Report Type: Spontaneous
  Country: US (occurrence: US)
  Receive Date: 20140228
  Receipt Date: 20140228
  Transmission Date: 20141002
  Serious: Yes (Other)
  Sender: FDA-Public Use
  Company Number: US-UCBSA-107860

PATIENT
  Age: 62 Year
  Sex: Male
  Weight: 74.8 kg

DRUGS (5)
  1. CIMZIA [Suspect]
     Indication: CROHN^S DISEASE
     Dates: start: 2010
  2. CIMZIA [Suspect]
     Indication: CROHN^S DISEASE
     Dates: start: 20100520, end: 2010
  3. LEVOTHYROXINE [Concomitant]
     Dosage: DAILY
  4. LISINOPRIL [Concomitant]
     Indication: HYPERTENSION
  5. AMLODOPINE [Concomitant]
     Indication: HYPERTENSION

REACTIONS (1)
  - Retinal detachment [Recovered/Resolved]
